FAERS Safety Report 4509616-5 (Version None)
Quarter: 2004Q4

REPORT INFORMATION
  Report Type: 
  Country: None (occurrence: None)
  Receive Date: 20041124
  Receipt Date: 20040830
  Transmission Date: 20050328
  Serious: No
  Sender: FDA-Public Use
  Company Number: US-BRISTOL-MYERS SQUIBB COMPANY-12690004

PATIENT
  Age: 51 Year
  Sex: Male
  Weight: 89 kg

DRUGS (5)
  1. SUSTIVA [Suspect]
     Indication: HIV TEST POSITIVE
     Dosage: AT NIGHT
     Route: 048
  2. COMBIVIR [Concomitant]
  3. MAXZIDE [Concomitant]
  4. MESALAMINE [Concomitant]
  5. TESTOSTERONE [Concomitant]
     Dosage: PATCH

REACTIONS (4)
  - DIZZINESS [None]
  - HEADACHE [None]
  - INDIFFERENCE [None]
  - MEDICATION ERROR [None]
